FAERS Safety Report 12267557 (Version 2)
Quarter: 2016Q2

REPORT INFORMATION
  Report Type: Report from Study
  Country: US (occurrence: US)
  Receive Date: 20160414
  Receipt Date: 20160425
  Transmission Date: 20160815
  Serious: Yes (Death)
  Sender: FDA-Public Use
  Company Number: US-AMGEN-USASL2016044221

PATIENT
  Age: 94 Year
  Sex: Male
  Weight: 57.42 kg

DRUGS (1)
  1. PROLIA [Suspect]
     Active Substance: DENOSUMAB
     Indication: OSTEOPOROSIS
     Dosage: 60 MG, Q6MO
     Route: 058
     Dates: start: 20140429

REACTIONS (3)
  - Fatigue [Fatal]
  - Blood pressure decreased [Fatal]
  - Pneumonia [Fatal]

NARRATIVE: CASE EVENT DATE: 20160104
